FAERS Safety Report 12154881 (Version 3)
Quarter: 2016Q1

REPORT INFORMATION
  Report Type: Spontaneous
  Country: JP (occurrence: JP)
  Receive Date: 20160307
  Receipt Date: 20160317
  Transmission Date: 20160526
  Serious: Yes (Hospitalization, Other)
  Sender: FDA-Public Use
  Company Number: PHJP2016JP004445

PATIENT
  Age: 65 Year
  Sex: Male

DRUGS (8)
  1. ESTRAMUSTINE [Concomitant]
     Active Substance: ESTRAMUSTINE
     Indication: PROSTATE CANCER
     Dosage: UNK
     Route: 065
     Dates: start: 200910, end: 201003
  2. LEUPRORELIN [Concomitant]
     Active Substance: LEUPROLIDE ACETATE
     Indication: PROSTATE CANCER
     Route: 065
  3. UFT [Concomitant]
     Active Substance: TEGAFUR\URACIL
     Indication: PRODUCT USED FOR UNKNOWN INDICATION
     Dosage: 300 MG, QD
     Route: 065
     Dates: start: 201012, end: 201102
  4. DOCETAXEL. [Concomitant]
     Active Substance: DOCETAXEL
     Indication: METASTASES TO BONE
     Dosage: 36 MG/M2, BIW
     Route: 065
     Dates: start: 201001
  5. ALIN//DEXAMETHASONE [Concomitant]
     Indication: PRODUCT USED FOR UNKNOWN INDICATION
     Dosage: 0.5 MG, QD
     Route: 065
     Dates: start: 201102
  6. BICALUTAMIDE. [Concomitant]
     Active Substance: BICALUTAMIDE
     Indication: PROSTATE CANCER
     Route: 065
     Dates: start: 20081212, end: 200910
  7. ETHINYLESTRADIOL [Concomitant]
     Active Substance: ETHINYL ESTRADIOL
     Indication: PROSTATE CANCER
     Route: 065
     Dates: start: 201003
  8. ZOLEDRONATE [Suspect]
     Active Substance: ZOLEDRONIC ACID
     Indication: METASTASES TO BONE
     Dosage: 4 MG, QMO
     Route: 041
     Dates: start: 201001, end: 201110

REACTIONS (13)
  - Swelling face [Recovering/Resolving]
  - Exposed bone in jaw [Unknown]
  - Aneurysm [Unknown]
  - Decreased appetite [Unknown]
  - Osteonecrosis of jaw [Unknown]
  - Fistula [Unknown]
  - Gingival abscess [Unknown]
  - Nutritional condition abnormal [Recovering/Resolving]
  - Mouth haemorrhage [Unknown]
  - Pain [Unknown]
  - Oral infection [Unknown]
  - Pneumonia aspiration [Unknown]
  - Jaw fracture [Unknown]

NARRATIVE: CASE EVENT DATE: 201105
